FAERS Safety Report 6260114 (Version 2)
Quarter: 2013Q3

REPORT INFORMATION
  Report Type: Other
  Country: US (occurrence: US)
  Receive Date: 20070313
  Receipt Date: 20130812
  Transmission Date: 20140515
  Serious: Yes (Other)
  Sender: FDA-Public Use
  Company Number: US-BRISTOL-MYERS SQUIBB COMPANY-13709829

PATIENT
  Age: 41 Year
  Sex: Female

DRUGS (6)
  1. ATAZANAVIR [Suspect]
     Indication: HIV INFECTION
  2. RITONAVIR [Concomitant]
     Indication: HIV INFECTION
  3. LAMIVUDINE [Concomitant]
     Indication: HIV INFECTION
  4. TENOFOVIR DF [Concomitant]
     Indication: HIV INFECTION
  5. GABAPENTIN [Concomitant]
  6. RANITIDINE [Concomitant]

REACTIONS (1)
  - Nephrolithiasis [Unknown]
